FAERS Safety Report 5883327-6 (Version None)
Quarter: 2008Q3

REPORT INFORMATION
  Report Type: 
  Country: None (occurrence: None)
  Receive Date: 20080910
  Receipt Date: 20080825
  Transmission Date: 20090109
  Serious: Yes (Other)
  Sender: FDA-Public Use
  Company Number: 8036721

PATIENT
  Age: 28 Year
  Sex: Female
  Weight: 49 kg

DRUGS (4)
  1. LEVETIRACETAM [Suspect]
     Indication: EPILEPSY
     Dosage: 500 MG 2/D PO
     Route: 048
     Dates: start: 20080227
  2. ETONOGESTREL [Suspect]
     Indication: CONTRACEPTION
     Dosage: 68 MG SC
     Route: 058
     Dates: start: 20080530, end: 20080806
  3. CLENIL [Concomitant]
  4. VENTOLIN [Concomitant]

REACTIONS (3)
  - DRUG EXPOSURE DURING PREGNANCY [None]
  - DRUG INTERACTION [None]
  - PREGNANCY [None]
